FAERS Safety Report 23145670 (Version 2)
Quarter: 2023Q4

REPORT INFORMATION
  Report Type: Spontaneous
  Country: US (occurrence: US)
  Receive Date: 20231103
  Receipt Date: 20231113
  Transmission Date: 20240109
  Serious: Yes (Other)
  Sender: FDA-Public Use
  Company Number: US-FreseniusKabi-FK202317336

PATIENT
  Age: 23 Year
  Sex: Female

DRUGS (6)
  1. DEXAMETHASONE [Suspect]
     Active Substance: DEXAMETHASONE
     Indication: B precursor type acute leukaemia
     Dosage: 6 MG/M2 CYCLIC (6 MG/M2 /DAY PO OR IV DIVIDED BID EVERY 4 WEEKS ON DAYS 1-5, 29-33 AND 57-61)
  2. INOTUZUMAB OZOGAMICIN [Suspect]
     Active Substance: INOTUZUMAB OZOGAMICIN
     Indication: B precursor type acute leukaemia
     Dosage: 0.5 MG/M2 CYCLIC (0.5 MG/M2, CYCLIC (ON DAY 1, 8 AND 15 OF A 28-DAY CYCLE))
     Dates: start: 20210716, end: 20211026
  3. VINCRISTINE SULFATE [Suspect]
     Active Substance: VINCRISTINE SULFATE
     Indication: B precursor type acute leukaemia
     Dosage: 1.5 MG/M2 CYCLIC (1.5 MG/M2 (MAXIMUM DOSE 2 MG) ON DAYS 1, 29 AND 57)
  4. METHOTREXATE SODIUM [Suspect]
     Active Substance: METHOTREXATE SODIUM
     Indication: B precursor type acute leukaemia
     Dosage: 20 MG/M2 WEEKLY (20 MG/M2 PO WEEKLY ON DAYS 8, 15, 22, 29, 36, 43, 50, 57, 64, 71, AND 78)
     Route: 048
  5. METHOTREXATE SODIUM [Suspect]
     Active Substance: METHOTREXATE SODIUM
     Dosage: FIRST REGIMEN AT 15 MG CYCLIC (15 MG ON DAY 1) AND SECOND REGIMEN AT 15 MG (GIVEN ON DAY 29 OF THE F
  6. MERCAPTOPURINE [Suspect]
     Active Substance: MERCAPTOPURINE
     Indication: B precursor type acute leukaemia
     Dosage: 75 MG/M2 CYCLIC (75 MG/M2 /DAY ON DAYS 1-84)

REACTIONS (2)
  - Maternal exposure via partner during pregnancy [Unknown]
  - Abortion spontaneous [Unknown]
